FAERS Safety Report 7256180-6 (Version None)
Quarter: 2011Q1

REPORT INFORMATION
  Report Type: 
  Country: None (occurrence: None)
  Receive Date: 20110129
  Receipt Date: 20100512
  Transmission Date: 20110831
  Serious: No
  Sender: FDA-Public Use
  Company Number: US-ABBOTT-10P-163-0617771-00

PATIENT
  Age: 73 Year
  Sex: Female
  Weight: 81.72 kg

DRUGS (10)
  1. LEVOXYL [Concomitant]
     Indication: THYROID DISORDER
  2. HUMIRA [Suspect]
  3. CHANTIX [Concomitant]
     Indication: SMOKING CESSATION THERAPY
     Dates: start: 20090101
  4. AVAPRO [Concomitant]
     Indication: HYPERTENSION
  5. CLOBETASOL [Concomitant]
     Indication: PSORIASIS
     Route: 061
  6. HUMIRA [Suspect]
     Indication: PSORIASIS
     Dosage: LOADING DOSE
     Route: 058
     Dates: start: 20091230, end: 20091230
  7. METHOCARBAMOL [Concomitant]
     Indication: MUSCLE SPASMS
  8. METHOCARBAMOL [Concomitant]
     Indication: BACK DISORDER
  9. LOVASTATIN [Concomitant]
     Indication: BLOOD CHOLESTEROL INCREASED
  10. ASPIRIN [Concomitant]
     Indication: PRODUCT USED FOR UNKNOWN INDICATION
     Route: 048

REACTIONS (2)
  - INJECTION SITE PAIN [None]
  - DRUG EFFECT DECREASED [None]
